FAERS Safety Report 6413037-8 (Version None)
Quarter: 2009Q4

REPORT INFORMATION
  Report Type: 
  Country: None (occurrence: None)
  Receive Date: 20091023
  Receipt Date: 20091023
  Transmission Date: 20100525
  Serious: Yes (Hospitalization, Other)
  Sender: FDA-Public Use
  Company Number: None

PATIENT
  Age: 74 Year
  Sex: Female
  Weight: 69.4003 kg

DRUGS (2)
  1. LEVAQUIN [Suspect]
     Indication: CHEST DISCOMFORT
     Dosage: TOOK ONCE - - ABOUT 10:00 P.M.
     Dates: start: 20070509
  2. LEVAQUIN [Suspect]
     Indication: THROAT LESION
     Dosage: TOOK ONCE - - ABOUT 10:00 P.M.
     Dates: start: 20070509

REACTIONS (12)
  - BURNING SENSATION [None]
  - DIZZINESS [None]
  - DRUG INEFFECTIVE [None]
  - DYSPNOEA [None]
  - ERYTHEMA [None]
  - FEELING HOT [None]
  - MUSCULOSKELETAL PAIN [None]
  - OEDEMA PERIPHERAL [None]
  - PAIN [None]
  - PRURITUS [None]
  - PYREXIA [None]
  - SWELLING [None]
